FAERS Safety Report 10695675 (Version 1)
Quarter: 2015Q1

REPORT INFORMATION
  Report Type: Spontaneous
  Country: US (occurrence: None)
  Receive Date: 20150106
  Receipt Date: 20150106
  Transmission Date: 20150721
  Serious: Yes (Other)
  Sender: FDA-Public Use
  Company Number: None

PATIENT
  Age: 45 Year
  Sex: Female

DRUGS (1)
  1. COPAXONE [Suspect]
     Active Substance: GLATIRAMER ACETATE
     Indication: MULTIPLE SCLEROSIS
     Dosage: 40MG, 3 TIMES A WEEK, SUB Q
     Route: 058
     Dates: start: 20140414

REACTIONS (5)
  - Nausea [None]
  - Pain in extremity [None]
  - Heart rate increased [None]
  - Presyncope [None]
  - Product taste abnormal [None]

NARRATIVE: CASE EVENT DATE: 20141205
